FAERS Safety Report 13890725 (Version 1)
Quarter: 2017Q3

REPORT INFORMATION
  Report Type: Spontaneous
  Country: FR (occurrence: FR)
  Receive Date: 20170822
  Receipt Date: 20170822
  Transmission Date: 20171127
  Serious: Yes (Other)
  Sender: FDA-Public Use
  Company Number: FR-ROCHE-1980816

PATIENT
  Age: 20 Year
  Sex: Male

DRUGS (6)
  1. LOVENOX [Concomitant]
     Active Substance: ENOXAPARIN SODIUM
  2. LEVOTHYROX [Concomitant]
     Active Substance: LEVOTHYROXINE
  3. METHYLPREDNISOLONE MYLAN [Concomitant]
     Active Substance: METHYLPREDNISOLONE
  4. LANSOPRAZOLE. [Concomitant]
     Active Substance: LANSOPRAZOLE
  5. RIVOTRIL [Suspect]
     Active Substance: CLONAZEPAM
     Indication: ACQUIRED EPILEPTIC APHASIA
     Dosage: 1 MG/1 ML
     Route: 042
     Dates: start: 20170721, end: 20170801
  6. MINIRINMELT [Concomitant]
     Active Substance: DESMOPRESSIN ACETATE

REACTIONS (1)
  - Hepatitis [Recovered/Resolved]

NARRATIVE: CASE EVENT DATE: 20170801
